FAERS Safety Report 16286076 (Version 2)
Quarter: 2019Q2

REPORT INFORMATION
  Report Type: Spontaneous
  Country: US (occurrence: US)
  Receive Date: 20190508
  Receipt Date: 20190513
  Transmission Date: 20190711
  Serious: No
  Sender: FDA-Public Use
  Company Number: US-PFIZER INC-2018390470

PATIENT
  Age: 64 Year
  Sex: Female

DRUGS (2)
  1. VFEND [Suspect]
     Active Substance: VORICONAZOLE
     Indication: GEOTRICHUM INFECTION
     Dosage: 200 MG, 2X/DAY
     Route: 048
     Dates: start: 201807
  2. VFEND [Suspect]
     Active Substance: VORICONAZOLE
     Indication: ACUTE MYELOID LEUKAEMIA

REACTIONS (2)
  - Off label use [Unknown]
  - Product use in unapproved indication [Unknown]
